FAERS Safety Report 19179293 (Version 1)
Quarter: 2021Q2

REPORT INFORMATION
  Report Type: Spontaneous
  Country: US (occurrence: US)
  Receive Date: 20210423
  Receipt Date: 20210423
  Transmission Date: 20210717
  Serious: No
  Sender: FDA-Public Use
  Company Number: None

PATIENT
  Sex: Male

DRUGS (10)
  1. METOPROL TAR [Concomitant]
  2. KESIMPTA [Suspect]
     Active Substance: OFATUMUMAB
     Route: 058
  3. NYSTATIN OIN [Concomitant]
  4. PREDNISONE. [Concomitant]
     Active Substance: PREDNISONE
  5. KESIMPTA [Suspect]
     Active Substance: OFATUMUMAB
     Indication: MULTIPLE SCLEROSIS
     Route: 058
     Dates: start: 20201127
  6. CEFDINIR. [Concomitant]
     Active Substance: CEFDINIR
  7. CIPROFLOXACN [Concomitant]
     Active Substance: CIPROFLOXACIN
  8. VITAMIN D3 [Suspect]
     Active Substance: CHOLECALCIFEROL
  9. MULTI?VIT [Concomitant]
     Active Substance: VITAMINS
  10. MUPROCIN OIN [Concomitant]

REACTIONS (1)
  - Infection [None]
